FAERS Safety Report 10995702 (Version 1)
Quarter: 2015Q2

REPORT INFORMATION
  Report Type: Spontaneous
  Country: US (occurrence: US)
  Receive Date: 20150407
  Receipt Date: 20150407
  Transmission Date: 20150821
  Serious: Yes (Life-Threatening, Hospitalization, Other)
  Sender: FDA-Public Use
  Company Number: US-ELI_LILLY_AND_COMPANY-US201504000139

PATIENT
  Sex: Female

DRUGS (9)
  1. ZYPREXA [Suspect]
     Active Substance: OLANZAPINE
     Dosage: 5 MG, QD
     Route: 065
  2. HEPARIN [Concomitant]
     Active Substance: HEPARIN SODIUM
     Indication: ANTICOAGULANT THERAPY
     Dosage: UNK, UNKNOWN
     Route: 065
  3. ZYPREXA [Suspect]
     Active Substance: OLANZAPINE
     Dosage: 2.5 MG, QD
     Route: 065
     Dates: start: 20150330
  4. LIPITOR [Concomitant]
     Active Substance: ATORVASTATIN CALCIUM
     Dosage: 80 MG, UNKNOWN
     Route: 065
  5. ZYPREXA [Suspect]
     Active Substance: OLANZAPINE
     Dosage: UNK, UNKNOWN
     Route: 065
  6. ZYPREXA [Suspect]
     Active Substance: OLANZAPINE
     Dosage: UNK, UNKNOWN
     Route: 065
  7. ZYPREXA [Suspect]
     Active Substance: OLANZAPINE
     Dosage: 20 MG, QD
     Route: 065
  8. VITAMIN B12 [Concomitant]
     Active Substance: CYANOCOBALAMIN
     Dosage: UNK, UNKNOWN
     Route: 065
  9. ZYPREXA [Suspect]
     Active Substance: OLANZAPINE
     Indication: PRODUCT USED FOR UNKNOWN INDICATION
     Dosage: 5 MG, QD
     Route: 065
     Dates: start: 1996

REACTIONS (15)
  - Gait disturbance [Unknown]
  - Urinary tract infection [Unknown]
  - Fracture [Unknown]
  - Pyrexia [Unknown]
  - Urinary tract infection [Recovered/Resolved]
  - Cardiac arrest [Unknown]
  - Fall [Unknown]
  - Delirium [Recovered/Resolved]
  - Poisoning [Not Recovered/Not Resolved]
  - Hyponatraemia [Unknown]
  - Mental impairment [Unknown]
  - Hypotonia [Unknown]
  - Syncope [Unknown]
  - Delirium [Unknown]
  - Weight decreased [Unknown]

NARRATIVE: CASE EVENT DATE: 2005
